FAERS Safety Report 8769877 (Version 2)
Quarter: 2012Q4

REPORT INFORMATION
  Report Type: 
  Country: JP (occurrence: JP)
  Receive Date: 20120906
  Receipt Date: 20121205
  Transmission Date: 20130627
  Serious: Yes (Other)
  Sender: FDA-Public Use
  Company Number: JP-009507513-2012SP029626

PATIENT
  Age: 49 Year
  Sex: Male
  Weight: 69 kg

DRUGS (14)
  1. PEGINTRON [Suspect]
     Indication: HEPATITIS C
     Dosage: 1.5 Microgram per kilogram, qw,daily dose unknown
     Route: 058
     Dates: start: 20120214
  2. PEGINTRON [Suspect]
     Dosage: 100 Microgram, qw, daily dose unknown
     Route: 058
     Dates: end: 20120731
  3. REBETOL [Suspect]
     Indication: HEPATITIS C
     Dosage: 800 mg, QD
     Route: 048
     Dates: start: 20120214, end: 20120305
  4. REBETOL [Suspect]
     Dosage: 600 mg, QD
     Route: 048
     Dates: start: 20120306, end: 20120731
  5. TELAVIC [Suspect]
     Indication: HEPATITIS C
     Dosage: 2250 mg, qd
     Route: 048
     Dates: start: 20120214, end: 20120507
  6. ZYLORIC [Suspect]
     Indication: ADVERSE EVENT
     Dosage: 200 mg, QD
     Route: 048
     Dates: start: 20120222, end: 20120306
  7. ZYLORIC [Suspect]
     Dosage: daily dose unknown
     Dates: start: 20120321, end: 20120328
  8. FEBURIC [Suspect]
     Indication: HYPERURICAEMIA
     Dosage: 10 mg,formulation:POR
     Dates: start: 20120424, end: 20120501
  9. URSO [Concomitant]
     Indication: HEPATITIS C
     Dosage: 600 mg, QD
     Route: 048
     Dates: end: 20120227
  10. LOXOPROFEN SODIUM [Concomitant]
     Indication: PYREXIA
     Dosage: DOSAGE TEXT: SINGLE USE DURING 60MG/DAY: INDICATION: PYREXIA 1
     Dates: start: 20120215
  11. RINDERON VG [Concomitant]
     Dosage: 0.5 g, QD
     Route: 061
     Dates: start: 20120220, end: 20120229
  12. ANTEBATE [Concomitant]
     Dosage: 0.5 g, QD
     Route: 061
     Dates: start: 20120222, end: 20120307
  13. INTAL [Concomitant]
     Indication: CONJUNCTIVAL HYPERAEMIA
     Dosage: FORMULATION: OPHTHALMIC SOLUTION
     Route: 047
     Dates: start: 20120222, end: 20120320
  14. LOXONIN [Concomitant]
     Indication: PYREXIA
     Dosage: INDICATION: PYREXIA 2
     Route: 048
     Dates: start: 20120501

REACTIONS (2)
  - Rhabdomyolysis [Recovering/Resolving]
  - Rhabdomyolysis [Recovered/Resolved]
